FAERS Safety Report 5647175-4 (Version None)
Quarter: 2008Q1

REPORT INFORMATION
  Report Type: 
  Country: None (occurrence: None)
  Receive Date: 20080228
  Receipt Date: 20080228
  Transmission Date: 20080703
  Serious: Yes (Hospitalization)
  Sender: FDA-Public Use
  Company Number: None

PATIENT
  Sex: Male
  Weight: 51.7101 kg

DRUGS (2)
  1. BIAXIN [Suspect]
     Indication: SINUSITIS
     Dosage: 500MG  BID  PO
     Route: 048
     Dates: start: 20080107, end: 20080112
  2. MUCINEX D [Suspect]
     Indication: SINUSITIS
     Dosage: 1 TABLET EVERY 12 HOURS PO
     Route: 048
     Dates: start: 20080107, end: 20080112

REACTIONS (5)
  - FLIGHT OF IDEAS [None]
  - HALLUCINATION [None]
  - INSOMNIA [None]
  - MANIA [None]
  - PSYCHOTIC DISORDER [None]
